FAERS Safety Report 6704886-7 (Version None)
Quarter: 2010Q2

REPORT INFORMATION
  Report Type: 
  Country: None (occurrence: None)
  Receive Date: 20100430
  Receipt Date: 20100217
  Transmission Date: 20101027
  Serious: No
  Sender: FDA-Public Use
  Company Number: US-ASTRAZENECA-2010SE06945

PATIENT
  Sex: Female

DRUGS (4)
  1. NEXIUM [Suspect]
     Indication: GASTROOESOPHAGEAL REFLUX DISEASE
     Route: 048
     Dates: start: 20100214
  2. SENNA [Concomitant]
  3. COLACE [Concomitant]
  4. GLUCOSAMINE CHONDROITIN [Concomitant]

REACTIONS (5)
  - CONTUSION [None]
  - DYSGEUSIA [None]
  - FATIGUE [None]
  - OEDEMA PERIPHERAL [None]
  - RASH [None]
